FAERS Safety Report 6086611-9 (Version None)
Quarter: 2009Q1

REPORT INFORMATION
  Report Type: 
  Country: None (occurrence: None)
  Receive Date: 20090223
  Receipt Date: 20090210
  Transmission Date: 20090719
  Serious: Yes (Other)
  Sender: FDA-Public Use
  Company Number: US-PFIZER INC-2009171685

PATIENT
  Sex: Female
  Weight: 63.039 kg

DRUGS (7)
  1. CHANTIX [Suspect]
     Indication: SMOKING CESSATION THERAPY
     Dosage: UNK
     Dates: start: 20080901
  2. DEPAKOTE [Concomitant]
     Dosage: UNK
  3. KLONOPIN [Concomitant]
     Dosage: UNK
  4. PRIMIDONE [Concomitant]
     Dosage: UNK
  5. PROPRANOLOL [Concomitant]
     Dosage: UNK
  6. GEODON [Concomitant]
     Dosage: UNK
  7. ESTROGEN NOS [Concomitant]
     Dosage: UNK

REACTIONS (4)
  - ANAEMIA [None]
  - DRUG INEFFECTIVE [None]
  - DYSGEUSIA [None]
  - HYSTERECTOMY [None]
